FAERS Safety Report 9111951 (Version 1)
Quarter: 2013Q1

REPORT INFORMATION
  Report Type: Spontaneous
  Country: US (occurrence: US)
  Receive Date: 20130219
  Receipt Date: 20130219
  Transmission Date: 20140127
  Serious: No
  Sender: FDA-Public Use
  Company Number: US-BRISTOL-MYERS SQUIBB COMPANY-17031246

PATIENT
  Age: 55 Year
  Sex: Male
  Weight: 117.91 kg

DRUGS (1)
  1. ABATACEPT SUBQ INJECTION 125MG/ML [Suspect]
     Indication: RHEUMATOID ARTHRITIS
     Dosage: LAST INF ON 05OCT2012;NO OF INF:5
     Route: 058

REACTIONS (2)
  - Diarrhoea [Unknown]
  - Flatulence [Unknown]
